FAERS Safety Report 6359683-1 (Version None)
Quarter: 2009Q3

REPORT INFORMATION
  Report Type: 
  Country: None (occurrence: None)
  Receive Date: 20090917
  Receipt Date: 20090904
  Transmission Date: 20100115
  Serious: Yes (Death, Life-Threatening, Hospitalization)
  Sender: FDA-Public Use
  Company Number: ES-PFIZER INC-2009154495

PATIENT
  Age: 57 Year

DRUGS (11)
  1. BLINDED *NO SUBJECT DRUG [Suspect]
     Indication: NON-SMALL CELL LUNG CANCER
     Dosage: 37.5 MG, CYCLIC
     Route: 048
     Dates: start: 20081222, end: 20090105
  2. BLINDED *PLACEBO [Suspect]
     Indication: NON-SMALL CELL LUNG CANCER
     Dosage: 37.5 MG, CYCLIC
     Route: 048
     Dates: start: 20081222, end: 20090105
  3. BLINDED SUNITINIB MALATE [Suspect]
     Indication: NON-SMALL CELL LUNG CANCER
     Dosage: 37.5 MG, CYCLIC
     Route: 048
     Dates: start: 20081222, end: 20090105
  4. *ERLOTINIB [Suspect]
     Indication: NON-SMALL CELL LUNG CANCER
     Dosage: 150 MG, 1X/DAY
     Route: 048
     Dates: start: 20081222, end: 20090105
  5. SALBUTAMOL SULFATE [Concomitant]
     Route: 055
     Dates: end: 20090127
  6. SERETIDE [Concomitant]
     Route: 055
     Dates: end: 20090105
  7. BUPRENORPHINE [Concomitant]
     Route: 062
     Dates: end: 20090105
  8. IBUPROFEN [Concomitant]
     Route: 048
     Dates: end: 20090105
  9. OMEPRAZOLE [Concomitant]
     Route: 048
     Dates: end: 20090105
  10. FUROSEMIDE [Concomitant]
     Route: 048
     Dates: start: 20081229, end: 20090119
  11. FUROSEMIDE [Concomitant]
     Dosage: UNK
     Route: 042
     Dates: start: 20081229, end: 20090119

REACTIONS (4)
  - DISEASE PROGRESSION [None]
  - NON-SMALL CELL LUNG CANCER [None]
  - OEDEMA PERIPHERAL [None]
  - SUPERINFECTION [None]
